FAERS Safety Report 7206237-0 (Version None)
Quarter: 2011Q1

REPORT INFORMATION
  Report Type: 
  Country: None (occurrence: None)
  Receive Date: 20110103
  Receipt Date: 20101227
  Transmission Date: 20110831
  Serious: Yes (Hospitalization)
  Sender: FDA-Public Use
  Company Number: DE-BAXTER-2010BH030256

PATIENT
  Age: 76 Year
  Sex: Male
  Weight: 79 kg

DRUGS (2)
  1. GAMMAGARD LIQUID [Suspect]
     Indication: SECONDARY IMMUNODEFICIENCY
     Route: 065
     Dates: start: 20101214, end: 20101214
  2. GAMMAGARD LIQUID [Suspect]
     Indication: BLOOD IMMUNOGLOBULIN G DECREASED
     Route: 065
     Dates: start: 20101214, end: 20101214

REACTIONS (5)
  - NAUSEA [None]
  - HYPERSENSITIVITY [None]
  - CHILLS [None]
  - BLOOD PRESSURE INCREASED [None]
  - DIZZINESS [None]
